FAERS Safety Report 10751754 (Version 7)
Quarter: 2015Q3

REPORT INFORMATION
  Report Type: Spontaneous
  Country: US (occurrence: US)
  Receive Date: 20150130
  Receipt Date: 20150810
  Transmission Date: 20151125
  Serious: Yes (Hospitalization, Other)
  Sender: FDA-Public Use
  Company Number: US-009507513-1203USA03838

PATIENT
  Sex: Female

DRUGS (4)
  1. VITAMINS (UNSPECIFIED) [Concomitant]
     Active Substance: VITAMINS
     Indication: PRODUCT USED FOR UNKNOWN INDICATION
     Dosage: UNK
     Route: 065
  2. FOSAMAX [Suspect]
     Active Substance: ALENDRONATE SODIUM
     Indication: OSTEOPOROSIS
     Dosage: 70 MG, UNK
     Route: 048
     Dates: start: 200410, end: 200701
  3. ALENDRONATE SODIUM. [Suspect]
     Active Substance: ALENDRONATE SODIUM
     Indication: OSTEOPOROSIS
     Dosage: 70 MG, UNK
     Route: 048
     Dates: start: 20070409, end: 201005
  4. LEVOTHYROXINE SODIUM. [Concomitant]
     Active Substance: LEVOTHYROXINE SODIUM
     Indication: PRODUCT USED FOR UNKNOWN INDICATION
     Dosage: 88 MICROGRAM, UNK
     Route: 065
     Dates: start: 1995

REACTIONS (24)
  - Lip and/or oral cavity cancer [Unknown]
  - Low turnover osteopathy [Unknown]
  - Fall [Recovered/Resolved]
  - Sinus tachycardia [Unknown]
  - Back pain [Not Recovered/Not Resolved]
  - Anaemia postoperative [Unknown]
  - Gingival cancer [Unknown]
  - Osteopenia [Unknown]
  - Carotid bruit [Unknown]
  - Arthritis [Unknown]
  - Hypothyroidism [Not Recovered/Not Resolved]
  - Lymphoedema [Unknown]
  - Arthralgia [Recovered/Resolved]
  - Pain in extremity [Not Recovered/Not Resolved]
  - Device dislocation [Unknown]
  - Osteoarthritis [Unknown]
  - Cystitis [Unknown]
  - Groin pain [Unknown]
  - Hypotension [Unknown]
  - Chronic obstructive pulmonary disease [Unknown]
  - Hypertension [Unknown]
  - Musculoskeletal pain [Not Recovered/Not Resolved]
  - Femur fracture [Recovered/Resolved]
  - Arthralgia [Not Recovered/Not Resolved]

NARRATIVE: CASE EVENT DATE: 201005
